FAERS Safety Report 17098764 (Version 2)
Quarter: 2019Q4

REPORT INFORMATION
  Report Type: Report from Study
  Country: US (occurrence: US)
  Receive Date: 20191202
  Receipt Date: 20191219
  Transmission Date: 20200122
  Serious: Yes (Death)
  Sender: FDA-Public Use
  Company Number: US-ROCHE-2486424

PATIENT

DRUGS (2)
  1. ATEZOLIZUMAB. [Suspect]
     Active Substance: ATEZOLIZUMAB
     Indication: MYELODYSPLASTIC SYNDROME
     Dosage: OVER 30-60 MINUTES
     Route: 042
  2. GUADECITABINE [Suspect]
     Active Substance: GUADECITABINE
     Indication: MYELODYSPLASTIC SYNDROME
     Route: 058

REACTIONS (1)
  - Disease progression [Fatal]
